FAERS Safety Report 16293717 (Version 1)
Quarter: 2019Q2

REPORT INFORMATION
  Report Type: Spontaneous
  Country: US (occurrence: US)
  Receive Date: 20190509
  Receipt Date: 20190509
  Transmission Date: 20190711
  Serious: No
  Sender: FDA-Public Use
  Company Number: US-PFIZER INC-2019173476

PATIENT
  Age: 61 Year
  Sex: Male

DRUGS (2)
  1. LYRICA [Suspect]
     Active Substance: PREGABALIN
     Indication: FIBROMYALGIA
     Dosage: UNK (LOWER DOSE), UNK
  2. LYRICA [Suspect]
     Active Substance: PREGABALIN
     Dosage: 300 MG, 3X/DAY (150MG TWO CAPSULES, THREE TIMES A DAY)
     Route: 048

REACTIONS (5)
  - Weight fluctuation [Unknown]
  - Drug ineffective [Unknown]
  - Off label use [Unknown]
  - Product use issue [Unknown]
  - Overdose [Unknown]
